FAERS Safety Report 25369286 (Version 1)
Quarter: 2025Q2

REPORT INFORMATION
  Report Type: Report from Study
  Country: CO (occurrence: CO)
  Receive Date: 20250528
  Receipt Date: 20250528
  Transmission Date: 20250717
  Serious: Yes (Hospitalization)
  Sender: ABBVIE
  Company Number: CO-ABBVIE-6299855

PATIENT
  Age: 34 Year
  Sex: Male
  Weight: 100 kg

DRUGS (1)
  1. SKYRIZI [Suspect]
     Active Substance: RISANKIZUMAB-RZAA
     Indication: Psoriasis
     Dosage: FORM STRENGTH: 150 MILLIGRAM
     Route: 058
     Dates: start: 20230803

REACTIONS (3)
  - Dengue fever [Recovering/Resolving]
  - Bone pain [Unknown]
  - Dizziness [Unknown]

NARRATIVE: CASE EVENT DATE: 20250513
